FAERS Safety Report 18723728 (Version 1)
Quarter: 2021Q1

REPORT INFORMATION
  Report Type: Spontaneous
  Country: US (occurrence: US)
  Receive Date: 20210109
  Receipt Date: 20210109
  Transmission Date: 20210419
  Serious: Yes (Disabling)
  Sender: FDA-Public Use
  Company Number: None

PATIENT
  Age: 51 Year
  Sex: Male
  Weight: 76.5 kg

DRUGS (3)
  1. TRAMADOL. [Concomitant]
     Active Substance: TRAMADOL
  2. FINASTERIDE. [Concomitant]
     Active Substance: FINASTERIDE
  3. PROLIA [Suspect]
     Active Substance: DENOSUMAB
     Dosage: ?          OTHER FREQUENCY:EVERY 6 MONTHS;?
     Route: 058
     Dates: start: 20181207, end: 20190701

REACTIONS (5)
  - Mastication disorder [None]
  - Speech disorder [None]
  - Bone loss [None]
  - Urinary tract infection [None]
  - Mouth ulceration [None]

NARRATIVE: CASE EVENT DATE: 20190701
